FAERS Safety Report 15641948 (Version 2)
Quarter: 2018Q4

REPORT INFORMATION
  Report Type: Spontaneous
  Country: NO (occurrence: NO)
  Receive Date: 20181121
  Receipt Date: 20181205
  Transmission Date: 20190205
  Serious: Yes (Death)
  Sender: FDA-Public Use
  Company Number: NO-ROCHE-2199448

PATIENT
  Age: 42 Year
  Sex: Male

DRUGS (1)
  1. TECENTRIQ [Suspect]
     Active Substance: ATEZOLIZUMAB
     Indication: LUNG NEOPLASM MALIGNANT
     Route: 065
     Dates: start: 20180807, end: 20180918

REACTIONS (3)
  - Cardiac failure [Fatal]
  - Myocarditis [Fatal]
  - Hypothyroidism [Fatal]
